FAERS Safety Report 5107773-3 (Version None)
Quarter: 2006Q3

REPORT INFORMATION
  Report Type: 
  Country: None (occurrence: None)
  Receive Date: 20060914
  Receipt Date: 20060811
  Transmission Date: 20061208
  Serious: No
  Sender: FDA-Public Use
  Company Number: 2006ADE/CIPRO-019

PATIENT
  Age: 48 Year
  Sex: Female

DRUGS (2)
  1. CIPROFLOXACIN [Suspect]
     Indication: RAYNAUD'S PHENOMENON
     Dosage: 500MG, ORAL
     Route: 048
  2. CIPROFLOXACIN [Suspect]
     Indication: SARCOIDOSIS
     Dosage: 500MG, ORAL
     Route: 048

REACTIONS (3)
  - JOINT SWELLING [None]
  - TENDON DISORDER [None]
  - TENDONITIS [None]
